FAERS Safety Report 12956772 (Version 1)
Quarter: 2016Q4

REPORT INFORMATION
  Report Type: Spontaneous
  Country: US (occurrence: US)
  Receive Date: 20161118
  Receipt Date: 20161118
  Transmission Date: 20170207
  Serious: No
  Sender: FDA-Public Use
  Company Number: US-BAYER-2016-214488

PATIENT
  Age: 26 Year
  Sex: Female

DRUGS (2)
  1. MIRENA [Suspect]
     Active Substance: LEVONORGESTREL
     Indication: CONTRACEPTION
     Dosage: 20 MCG/24HR, CONT
     Route: 015
     Dates: start: 20161102
  2. MIRENA [Suspect]
     Active Substance: LEVONORGESTREL
     Indication: HEADACHE

REACTIONS (3)
  - Headache [Recovered/Resolved]
  - Decreased appetite [None]
  - Nausea [None]
